FAERS Safety Report 5157550-2 (Version None)
Quarter: 2006Q4

REPORT INFORMATION
  Report Type: 
  Country: None (occurrence: None)
  Receive Date: 20061127
  Receipt Date: 20061121
  Transmission Date: 20070319
  Serious: Yes (Death)
  Sender: FDA-Public Use
  Company Number: FR-GLAXOSMITHKLINE-B0447732A

PATIENT
  Age: 55 Year
  Sex: Male

DRUGS (4)
  1. CLAMOXYL [Suspect]
     Dosage: 500MG PER DAY
     Route: 048
     Dates: start: 20060915, end: 20060925
  2. RIFADIN [Suspect]
     Dosage: 1800MG PER DAY
     Route: 048
     Dates: start: 20060914, end: 20060925
  3. VASTEN [Suspect]
     Dosage: 10MG PER DAY
     Route: 048
     Dates: start: 20060914, end: 20060927
  4. NEURONTIN [Suspect]
     Dosage: 200MG PER DAY
     Route: 048
     Dates: start: 20060916, end: 20060927

REACTIONS (5)
  - AGRANULOCYTOSIS [None]
  - ANAEMIA [None]
  - APLASIA [None]
  - CARDIO-RESPIRATORY ARREST [None]
  - FEBRILE NEUTROPENIA [None]
